FAERS Safety Report 5662432-3 (Version None)
Quarter: 2008Q1

REPORT INFORMATION
  Report Type: 
  Country: None (occurrence: None)
  Receive Date: 20080313
  Receipt Date: 20080306
  Transmission Date: 20080703
  Serious: Yes (Life-Threatening, Hospitalization, Other)
  Sender: FDA-Public Use
  Company Number: GB-BAYER-200611007BNE

PATIENT
  Age: 38 Year
  Sex: Female

DRUGS (4)
  1. NIFEDIPINE [Suspect]
     Indication: TOCOLYSIS
     Dosage: TOTAL DAILY DOSE: 60 MG
     Route: 048
  2. NIFEDIPINE [Suspect]
     Route: 048
  3. BETAMETHASONE [Suspect]
     Indication: THREATENED LABOUR
     Route: 030
  4. GENERAL ANAESTHESIA [Suspect]
     Indication: CARDIOVERSION

REACTIONS (4)
  - ATRIAL FIBRILLATION [None]
  - CHEST PAIN [None]
  - HYPOTENSION [None]
  - PALPITATIONS [None]
